FAERS Safety Report 20079513 (Version 6)
Quarter: 2023Q1

REPORT INFORMATION
  Report Type: Report from Study
  Country: BR (occurrence: BR)
  Receive Date: 20211117
  Receipt Date: 20230209
  Transmission Date: 20230418
  Serious: Yes (Other)
  Sender: FDA-Public Use
  Company Number: BR-NOVARTISPH-NVSC2021BR259919

PATIENT
  Age: 60 Year
  Sex: Female

DRUGS (3)
  1. KISQALI [Suspect]
     Active Substance: RIBOCICLIB
     Indication: Product used for unknown indication
     Dosage: UNK
     Route: 065
     Dates: start: 20201215
  2. KISQALI [Suspect]
     Active Substance: RIBOCICLIB
     Dosage: 3 DOSAGE FORM
     Route: 065
     Dates: start: 20201222
  3. LETROZOLE [Suspect]
     Active Substance: LETROZOLE
     Indication: Product used for unknown indication
     Dosage: UNK
     Route: 065
     Dates: start: 20201215

REACTIONS (15)
  - Metastasis [Unknown]
  - Thrombosis [Recovered/Resolved]
  - Metastases to liver [Unknown]
  - Metastases to peritoneum [Unknown]
  - Metastases to bone [Unknown]
  - Aphthous ulcer [Recovered/Resolved]
  - Eating disorder [Recovered/Resolved]
  - Speech disorder [Recovered/Resolved]
  - Bone scan [Unknown]
  - Hepatic lesion [Recovered/Resolved]
  - Cardiovascular disorder [Unknown]
  - Feeling abnormal [Unknown]
  - Skin lesion [Unknown]
  - Peritoneal lesion [Unknown]
  - Malaise [Unknown]

NARRATIVE: CASE EVENT DATE: 20230113
